FAERS Safety Report 25273375 (Version 2)
Quarter: 2025Q2

REPORT INFORMATION
  Report Type: Spontaneous
  Country: ES (occurrence: ES)
  Receive Date: 20250506
  Receipt Date: 20250529
  Transmission Date: 20250716
  Serious: Yes (Hospitalization)
  Sender: DR REDDYS
  Company Number: None

PATIENT
  Age: 60 Year
  Sex: Male
  Weight: 83 kg

DRUGS (6)
  1. BORTEZOMIB [Suspect]
     Active Substance: BORTEZOMIB
     Indication: Plasma cell myeloma
     Dosage: 1.3 MG/M2 SC((2.73 MG);+1 +4 +8 +11(CYCLE 1);+1 +4 +8 +11(CYCLE 2);
     Route: 058
     Dates: start: 20231201
  2. BORTEZOMIB [Suspect]
     Active Substance: BORTEZOMIB
     Dosage: 0.7 MG/M2 SC(1.45 MG);+1 +4 +8 +11(CYCLE 4)
     Route: 058
  3. LENALIDOMIDE [Suspect]
     Active Substance: LENALIDOMIDE
     Indication: Plasma cell myeloma
     Dosage: 5 MG PO(ORAL)(DOSE ADJUSTED FOR RENAL FUNCTION); +1 TO +21(CYCLE 1);+1 TO +21(CYCLE 2);+1 TO +21(CYC
     Route: 058
     Dates: start: 20231201
  4. DEXAMETHASONE [Suspect]
     Active Substance: DEXAMETHASONE
     Indication: Plasma cell myeloma
     Dosage: 40 MG PO(ORAL); +1 TO +4+ AND +9 TO +12(CYCLE 1).
     Route: 048
     Dates: start: 20231201
  5. DEXAMETHASONE [Suspect]
     Active Substance: DEXAMETHASONE
     Dosage: 20 MG PO(ORAL);+1 TO +4 AND+9 TO +12(CYCLE 2);+1 TO +4 AND+9 TO +12(CYCLE 3);+1 TO +4 AND+9 TO +12(C
     Route: 048
  6. DARATUMUMAB [Suspect]
     Active Substance: DARATUMUMAB
     Indication: Plasma cell myeloma
     Dosage: 1800 MG SC(SUBCUTANEOUS); +1 +8 +15 +22(CYCLE 1); +1 +8 +15(CYCLE 2); +1 +15(CYCLE 3); +1 +15(CYCLE
     Route: 058
     Dates: start: 20231201

REACTIONS (2)
  - Diverticulitis [Recovering/Resolving]
  - Large intestine perforation [Unknown]
